FAERS Safety Report 5936779-7 (Version None)
Quarter: 2008Q4

REPORT INFORMATION
  Report Type: 
  Country: None (occurrence: None)
  Receive Date: 20081029
  Receipt Date: 20081024
  Transmission Date: 20090506
  Serious: Yes (Death, Life-Threatening, Hospitalization, Other)
  Sender: FDA-Public Use
  Company Number: 2008SP018508

PATIENT
  Age: 56 Year
  Sex: Male
  Weight: 102.2 kg

DRUGS (18)
  1. PEG-INTRON [Suspect]
     Indication: HEPATITIS C
     Dosage: 150 MCG; QW; SC
     Route: 058
     Dates: start: 20080711, end: 20080910
  2. REBETOL [Suspect]
     Indication: HEPATITIS C
     Dosage: 1200 MG; BID; PO, ; PO, 200 MG; BID; PO
     Route: 048
     Dates: start: 20080711, end: 20080814
  3. REBETOL [Suspect]
     Indication: HEPATITIS C
     Dosage: 1200 MG; BID; PO, ; PO, 200 MG; BID; PO
     Route: 048
     Dates: start: 20080815, end: 20080828
  4. REBETOL [Suspect]
     Indication: HEPATITIS C
     Dosage: 1200 MG; BID; PO, ; PO, 200 MG; BID; PO
     Route: 048
     Dates: start: 20080903, end: 20080917
  5. NOVOLIN [Concomitant]
  6. FUROSEMIDE [Concomitant]
  7. SPIRONOLACTONE [Concomitant]
  8. STEROID [Concomitant]
  9. CELLCEPT [Concomitant]
  10. INSULIN [Concomitant]
  11. DOBUTAMINE HCL [Concomitant]
  12. VALCYTE [Concomitant]
  13. DIURIL [Concomitant]
  14. SEPTRA [Concomitant]
  15. ASPIRIN [Concomitant]
  16. DOCUSATE [Concomitant]
  17. PROTONIX [Concomitant]
  18. SILDENAFIL CITRATE [Concomitant]

REACTIONS (24)
  - ANAEMIA [None]
  - AORTIC VALVE INCOMPETENCE [None]
  - BLOOD UREA INCREASED [None]
  - CARDIAC ARREST [None]
  - CARDIAC FAILURE [None]
  - CONTINUOUS HAEMODIAFILTRATION [None]
  - ECHOCARDIOGRAM ABNORMAL [None]
  - ELECTROMECHANICAL DISSOCIATION [None]
  - ENCEPHALOPATHY [None]
  - GENERAL PHYSICAL HEALTH DETERIORATION [None]
  - HAEMOCHROMATOSIS [None]
  - HAEMOGLOBIN DECREASED [None]
  - HYPOTENSION [None]
  - IRON OVERLOAD [None]
  - LIVER TRANSPLANT [None]
  - MYOCARDIAL INFARCTION [None]
  - MYOCARDIAL ISCHAEMIA [None]
  - PLATELET COUNT DECREASED [None]
  - PULMONARY HYPERTENSION [None]
  - STRESS CARDIOMYOPATHY [None]
  - TACHYCARDIA [None]
  - TROPONIN INCREASED [None]
  - URINARY TRACT INFECTION [None]
  - VENTRICULAR FAILURE [None]
